FAERS Safety Report 15122747 (Version 4)
Quarter: 2018Q3

REPORT INFORMATION
  Report Type: Report from Study
  Country: ES (occurrence: ES)
  Receive Date: 20180709
  Receipt Date: 20180927
  Transmission Date: 20181010
  Serious: Yes (Hospitalization, Other)
  Sender: FDA-Public Use
  Company Number: ES-PFIZER INC-2018269562

PATIENT
  Age: 61 Year
  Sex: Male
  Weight: 89 kg

DRUGS (24)
  1. AFLIBERCEPT [Suspect]
     Active Substance: AFLIBERCEPT
     Dosage: 356 MG, CYCLIC (356 MG,QCY)
     Dates: start: 20140602, end: 20140602
  2. FLUOROURACIL. [Suspect]
     Active Substance: FLUOROURACIL
     Dosage: 800 MG, CYCLIC (800 MG, QCY)
     Route: 040
     Dates: start: 20140519, end: 20140519
  3. ENOXAPARIN [Concomitant]
     Active Substance: ENOXAPARIN
     Dosage: UNK
     Dates: start: 20140616, end: 20140617
  4. HIERRO [Concomitant]
     Dosage: UNK
  5. FLUOROURACIL. [Suspect]
     Active Substance: FLUOROURACIL
     Dosage: 800 MG, CYCLIC (800 MG, QCY)
     Route: 040
     Dates: start: 20140602, end: 20140602
  6. FERROUS FUMARATE [Concomitant]
     Active Substance: FERROUS FUMARATE
     Dosage: UNK
  7. IRON FERROUS SULFATE [Concomitant]
  8. FLUOROURACIL. [Suspect]
     Active Substance: FLUOROURACIL
     Dosage: 4800 MG, CYCLIC (4800 MG, QCY)
     Route: 042
     Dates: start: 20140602, end: 20140602
  9. OMEPRAZOLE. [Concomitant]
     Active Substance: OMEPRAZOLE
     Dosage: UNK
     Dates: start: 201405
  10. TAMSULOSIN [Concomitant]
     Active Substance: TAMSULOSIN
     Dosage: UNK
     Dates: start: 20140716, end: 20140722
  11. ENALAPRIL MALEATE/NITRENDIPINE [Concomitant]
     Dosage: UNK
  12. LACTULOSE. [Concomitant]
     Active Substance: LACTULOSE
     Dosage: UNK
     Dates: start: 20140528
  13. IRINOTECAN HCL [Suspect]
     Active Substance: IRINOTECAN HYDROCHLORIDE
     Dosage: 360 MG, CYCLIC (360 MG, QCY)
     Dates: start: 20140602, end: 20140602
  14. AFLIBERCEPT [Suspect]
     Active Substance: AFLIBERCEPT
     Indication: COLORECTAL CANCER METASTATIC
     Dosage: 356 MG, CYCLIC (356 MG,QCY)
     Dates: start: 20140519, end: 20140519
  15. ATROPINE. [Concomitant]
     Active Substance: ATROPINE
     Dosage: UNK
     Dates: start: 20140602, end: 20140602
  16. IRINOTECAN HCL [Suspect]
     Active Substance: IRINOTECAN HYDROCHLORIDE
     Indication: COLORECTAL CANCER METASTATIC
     Dosage: 360 MG, CYCLIC (360 MG, QCY)
     Dates: start: 20140519, end: 20140519
  17. CALCIUM FOLINATE [Suspect]
     Active Substance: LEUCOVORIN CALCIUM
     Dosage: 800 MG, CYCLIC (800 MG, QCY)
     Dates: start: 20140602, end: 20140602
  18. CALCIUM FOLINATE [Suspect]
     Active Substance: LEUCOVORIN CALCIUM
     Indication: COLORECTAL CANCER METASTATIC
     Dosage: 800 MG, CYCLIC (800 MG, QCY)
     Dates: start: 20140519, end: 20140519
  19. FLUOROURACIL. [Suspect]
     Active Substance: FLUOROURACIL
     Indication: COLORECTAL CANCER METASTATIC
     Dosage: 4800 MG, CYCLIC (4800 MG, QCY)
     Route: 042
     Dates: start: 20140519, end: 20140519
  20. PARAFFIN [Concomitant]
     Active Substance: PARAFFIN
     Dosage: UNK
     Dates: start: 20140528
  21. METOCLOPRAMIDE. [Concomitant]
     Active Substance: METOCLOPRAMIDE
     Dosage: UNK
     Dates: end: 201405
  22. ATROPINE. [Concomitant]
     Active Substance: ATROPINE
     Indication: PROPHYLAXIS
     Dosage: UNK
     Dates: start: 20140519, end: 20140519
  23. MEPIVACAINE [Concomitant]
     Active Substance: MEPIVACAINE\MEPIVACAINE HYDROCHLORIDE
     Dosage: UNK
     Dates: start: 20140614, end: 20140618
  24. ALLOPURINOL. [Concomitant]
     Active Substance: ALLOPURINOL
     Dosage: UNK
     Dates: start: 2013

REACTIONS (13)
  - Hydronephrosis [Recovering/Resolving]
  - Constipation [Recovered/Resolved]
  - Abdominal pain lower [Recovering/Resolving]
  - Oliguria [Recovered/Resolved]
  - Pyrexia [Recovered/Resolved]
  - Nausea [Recovered/Resolved]
  - Acute kidney injury [Recovered/Resolved]
  - Dizziness [Recovered/Resolved]
  - Neutropenia [Recovered/Resolved]
  - Abdominal pain [Recovered/Resolved]
  - Vomiting [Recovered/Resolved]
  - Diarrhoea [Recovered/Resolved]
  - Oedema peripheral [Recovered/Resolved]

NARRATIVE: CASE EVENT DATE: 20140613
